FAERS Safety Report 15777034 (Version 1)
Quarter: 2018Q4

REPORT INFORMATION
  Report Type: Spontaneous
  Country: US (occurrence: US)
  Receive Date: 20181211
  Receipt Date: 20181211
  Transmission Date: 20190205
  Serious: No
  Sender: FDA-Public Use
  Company Number: None

PATIENT
  Age: 70 Year
  Sex: Female

DRUGS (4)
  1. MECLIZINE [Concomitant]
     Active Substance: MECLIZINE HYDROCHLORIDE
  2. HYDROXYZLNE [Concomitant]
  3. SERTRALLNE [Concomitant]
  4. FORTEO [Suspect]
     Active Substance: TERIPARATIDE
     Route: 058
     Dates: start: 20181114

REACTIONS (4)
  - Skin disorder [None]
  - Rash generalised [None]
  - Rash erythematous [None]
  - Erythema [None]

NARRATIVE: CASE EVENT DATE: 20181206
